FAERS Safety Report 9785391 (Version 2)
Quarter: 2014Q1

REPORT INFORMATION
  Report Type: Spontaneous
  Country: US (occurrence: None)
  Receive Date: 20131224
  Receipt Date: 20140113
  Transmission Date: 20141002
  Serious: Yes (Hospitalization)
  Sender: FDA-Public Use
  Company Number: 2097875

PATIENT
  Sex: 0

DRUGS (1)
  1. BUPIVACAINE HCL [Suspect]
     Indication: UNEVALUABLE EVENT
     Route: 050
     Dates: start: 20131029

REACTIONS (2)
  - Investigation [None]
  - Pain [None]
